FAERS Safety Report 10185323 (Version 1)
Quarter: 2014Q2

REPORT INFORMATION
  Report Type: Spontaneous
  Country: GB (occurrence: GB)
  Receive Date: 20140521
  Receipt Date: 20140521
  Transmission Date: 20141212
  Serious: Yes (Other)
  Sender: FDA-Public Use
  Company Number: GB-WATSON-2014-09986

PATIENT
  Age: 47 Year
  Sex: Female
  Weight: 64 kg

DRUGS (7)
  1. SIMVASTATIN (UNKNOWN) [Suspect]
     Indication: GLOMERULONEPHRITIS
     Dosage: UNK
     Route: 048
  2. OMEPRAZOLE [Concomitant]
     Indication: PRODUCT USED FOR UNKNOWN INDICATION
     Dosage: UNK
     Route: 065
  3. PARACETAMOL [Concomitant]
     Indication: PRODUCT USED FOR UNKNOWN INDICATION
     Dosage: UNK
     Route: 065
  4. AMITRIPTYLINE [Concomitant]
     Indication: PRODUCT USED FOR UNKNOWN INDICATION
     Dosage: UNK (PROBABLY AT 60MG, BUT IT MAY HAVE BEEN 10MG DAILY)
     Route: 065
  5. TRAMADOL [Concomitant]
     Indication: PRODUCT USED FOR UNKNOWN INDICATION
     Dosage: UNK
     Route: 065
  6. LORATADINE [Concomitant]
     Indication: PRODUCT USED FOR UNKNOWN INDICATION
     Dosage: UNK
     Route: 065
  7. FUROSEMIDE [Concomitant]
     Indication: PRODUCT USED FOR UNKNOWN INDICATION
     Dosage: UNK (40MG, PROBABLY)
     Route: 065

REACTIONS (3)
  - Hypokinesia [Recovered/Resolved with Sequelae]
  - Pain [Recovered/Resolved]
  - Burning sensation [Recovered/Resolved]
